FAERS Safety Report 5528208-2 (Version None)
Quarter: 2007Q4

REPORT INFORMATION
  Report Type: 
  Country: None (occurrence: None)
  Receive Date: 20071128
  Receipt Date: 20071119
  Transmission Date: 20080405
  Serious: Yes (Death, Hospitalization, Disabling, Other)
  Sender: FDA-Public Use
  Company Number: US-PFIZER INC-2007044850

PATIENT
  Sex: Female

DRUGS (1)
  1. CELEBREX [Suspect]
     Indication: PARKINSON'S DISEASE

REACTIONS (3)
  - CARDIOVASCULAR DISORDER [None]
  - CEREBROVASCULAR ACCIDENT [None]
  - DEPRESSION [None]
